FAERS Safety Report 7091276-3 (Version None)
Quarter: 2010Q4

REPORT INFORMATION
  Report Type: 
  Country: None (occurrence: None)
  Receive Date: 20101109
  Receipt Date: 20101101
  Transmission Date: 20110411
  Serious: Yes (Other)
  Sender: FDA-Public Use
  Company Number: TW-TEVA-254288ISR

PATIENT
  Age: 56 Year
  Sex: Male

DRUGS (3)
  1. METHOTREXATE [Suspect]
     Indication: URETERIC CANCER
  2. CYCLOPHOSPHAMIDE [Suspect]
     Indication: URETERIC CANCER
  3. DOXORUBICIN HCL [Suspect]
     Indication: URETERIC CANCER

REACTIONS (3)
  - EMPHYSEMA [None]
  - NAUSEA [None]
  - VOMITING [None]
